FAERS Safety Report 8343021 (Version 2)
Quarter: 2014Q2

REPORT INFORMATION
  Report Type: Spontaneous
  Country: CA (occurrence: CA)
  Receive Date: 20120119
  Receipt Date: 20140429
  Transmission Date: 20141212
  Serious: Yes (Other)
  Sender: FDA-Public Use
  Company Number: CA-ELI_LILLY_AND_COMPANY-CA201201002300

PATIENT
  Age: 45 Year
  Sex: Female
  Weight: 81 kg

DRUGS (3)
  1. CYMBALTA [Suspect]
     Indication: PRODUCT USED FOR UNKNOWN INDICATION
     Dosage: 60 MG, UNKNOWN
     Route: 065
     Dates: start: 20110405
  2. SEROQUEL [Suspect]
     Indication: PRODUCT USED FOR UNKNOWN INDICATION
     Dosage: 150 MG, UNKNOWN
     Route: 065
     Dates: start: 20091201, end: 20110525
  3. SEROQUEL [Suspect]
     Dosage: 100 MG, UNKNOWN
     Route: 065
     Dates: start: 20110525, end: 20110621

REACTIONS (1)
  - Cholestasis [Recovered/Resolved]
